FAERS Safety Report 19946236 (Version 5)
Quarter: 2021Q4

REPORT INFORMATION
  Report Type: Report from Study
  Country: CA (occurrence: CA)
  Receive Date: 20211013
  Receipt Date: 20211110
  Transmission Date: 20220303
  Serious: Yes (Hospitalization)
  Sender: FDA-Public Use
  Company Number: CA-ABBVIE-21K-028-4116715-00

PATIENT
  Age: 70 Year
  Sex: Female

DRUGS (5)
  1. RINVOQ [Suspect]
     Active Substance: UPADACITINIB
     Indication: Rheumatoid arthritis
     Route: 048
     Dates: start: 20201204, end: 202109
  2. RINVOQ [Suspect]
     Active Substance: UPADACITINIB
     Route: 048
     Dates: start: 20211013
  3. COVID-19 VACCINE [Concomitant]
     Indication: COVID-19 prophylaxis
     Route: 030
     Dates: start: 2021, end: 2021
  4. COVID-19 VACCINE [Concomitant]
     Route: 030
     Dates: start: 2021, end: 2021
  5. COVID-19 VACCINE [Concomitant]
     Route: 030
     Dates: start: 20210930, end: 20210930

REACTIONS (5)
  - Dyspnoea [Recovered/Resolved]
  - Infection [Unknown]
  - Peripheral swelling [Recovered/Resolved]
  - Arthropathy [Unknown]
  - Diarrhoea [Unknown]

NARRATIVE: CASE EVENT DATE: 20211001
